FAERS Safety Report 8044272-3 (Version None)
Quarter: 2012Q1

REPORT INFORMATION
  Report Type: 
  Country: None (occurrence: None)
  Receive Date: 20120113
  Receipt Date: 20120105
  Transmission Date: 20120608
  Serious: Yes (Other)
  Sender: FDA-Public Use
  Company Number: JP-AMGEN-JPNSP2011062871

PATIENT

DRUGS (1)
  1. ENBREL [Suspect]
     Indication: PRODUCT USED FOR UNKNOWN INDICATION
     Dosage: 25 MG, 2X/WEEK
     Route: 058
     Dates: start: 20111121, end: 20111125

REACTIONS (3)
  - GASTROINTESTINAL HAEMORRHAGE [None]
  - GASTRIC ULCER [None]
  - ANAPHYLACTIC REACTION [None]
